FAERS Safety Report 24970647 (Version 3)
Quarter: 2025Q3

REPORT INFORMATION
  Report Type: Report from Study
  Country: US (occurrence: US)
  Receive Date: 20250214
  Receipt Date: 20250809
  Transmission Date: 20251021
  Serious: Yes (Life-Threatening, Other)
  Sender: ALEXION PHARMACEUTICALS
  Company Number: US-AstraZeneca-CH-00804832AP

PATIENT
  Age: 50 Year
  Sex: Female

DRUGS (1)
  1. TEZEPELUMAB [Suspect]
     Active Substance: TEZEPELUMAB
     Indication: Asthma
     Route: 065

REACTIONS (6)
  - Cardiac arrest [Unknown]
  - Anxiety [Unknown]
  - Nervousness [Unknown]
  - Device leakage [Unknown]
  - Device delivery system issue [Unknown]
  - Device defective [Unknown]

NARRATIVE: CASE EVENT DATE: 20250210
